FAERS Safety Report 6208637-4 (Version None)
Quarter: 2009Q2

REPORT INFORMATION
  Report Type: 
  Country: None (occurrence: None)
  Receive Date: 20090529
  Receipt Date: 20090518
  Transmission Date: 20091009
  Serious: Yes (Hospitalization)
  Sender: FDA-Public Use
  Company Number: JP-PFIZER INC-2009206770

PATIENT
  Age: 60 Year

DRUGS (8)
  1. SUNITINIB MALATE [Suspect]
     Dosage: 50 MG, 1X/DAY
     Route: 048
     Dates: start: 20090219, end: 20090307
  2. LOXOPROFEN SODIUM [Concomitant]
     Dosage: UNK
     Route: 048
  3. MUCOSTA [Concomitant]
     Dosage: UNK
     Route: 048
  4. PASTARON [Concomitant]
     Route: 062
     Dates: end: 20090306
  5. MAG-LAX [Concomitant]
     Indication: CONSTIPATION
     Dosage: UNK
     Route: 048
     Dates: start: 20090226
  6. DAI-KENCHU-TO [Concomitant]
     Indication: CONSTIPATION
     Route: 048
     Dates: start: 20090226, end: 20090308
  7. ZOMETA [Concomitant]
     Indication: CANCER PAIN
     Route: 048
     Dates: start: 20090304, end: 20090304
  8. OXYCONTIN [Concomitant]
     Indication: CANCER PAIN
     Dosage: UNK
     Dates: start: 20090305

REACTIONS (5)
  - DISSEMINATED INTRAVASCULAR COAGULATION [None]
  - HAEMOGLOBIN DECREASED [None]
  - NAUSEA [None]
  - PLATELET COUNT DECREASED [None]
  - WHITE BLOOD CELL COUNT DECREASED [None]
